FAERS Safety Report 5465348-0 (Version None)
Quarter: 2007Q3

REPORT INFORMATION
  Report Type: 
  Country: None (occurrence: None)
  Receive Date: 20070920
  Receipt Date: 20070911
  Transmission Date: 20080115
  Serious: Yes (Hospitalization)
  Sender: FDA-Public Use
  Company Number: 237104K07USA

PATIENT
  Age: 43 Year
  Sex: Female

DRUGS (14)
  1. REBIF [Suspect]
     Indication: MULTIPLE SCLEROSIS
     Dosage: 44 MCG, 3 IN 1 WEEKS, SUBCUTANEOUS
     Route: 058
     Dates: start: 20030301, end: 20070101
  2. REBIF [Suspect]
     Indication: MULTIPLE SCLEROSIS
     Dosage: 44 MCG, 3 IN 1 WEEKS, SUBCUTANEOUS
     Route: 058
     Dates: start: 20070301
  3. DETROL LA [Concomitant]
  4. GABAPENTIN [Concomitant]
  5. BACLOFEN [Concomitant]
  6. TIZANIDINE HCL [Concomitant]
  7. PROVIGIL [Concomitant]
  8. ASPIRIN (ACETYLSALICYLTC ACID) [Concomitant]
  9. LIPITOR [Concomitant]
  10. DOCUSATE (DOCUSATE) [Concomitant]
  11. NEXIUM [Concomitant]
  12. METOPROLOL TARTRATE [Concomitant]
  13. NIFEDIPINE [Concomitant]
  14. MIRALAX [Concomitant]

REACTIONS (10)
  - BLOOD PRESSURE SYSTOLIC INCREASED [None]
  - DISEASE PROGRESSION [None]
  - HYPERTENSIVE CRISIS [None]
  - MICROANGIOPATHY [None]
  - MULTIPLE SCLEROSIS RELAPSE [None]
  - RENAL FAILURE ACUTE [None]
  - RESPIRATORY FAILURE [None]
  - STRESS [None]
  - THROMBOSIS [None]
  - TROPONIN I INCREASED [None]
